FAERS Safety Report 11555401 (Version 4)
Quarter: 2016Q1

REPORT INFORMATION
  Report Type: Spontaneous
  Country: US (occurrence: US)
  Receive Date: 20150925
  Receipt Date: 20160212
  Transmission Date: 20160525
  Serious: Yes (Other)
  Sender: FDA-Public Use
  Company Number: US-UNICHEM LABORATORIES LIMITED-UCM201508-000694

PATIENT
  Sex: Male

DRUGS (9)
  1. HYDROCHLOROTHIAZIDE. [Suspect]
     Active Substance: HYDROCHLOROTHIAZIDE
     Indication: CARDIAC FAILURE CONGESTIVE
     Route: 048
  2. NORVASC [Concomitant]
     Active Substance: AMLODIPINE BESYLATE
  3. ASCORBIC ACID. [Concomitant]
     Active Substance: ASCORBIC ACID
  4. COREG [Concomitant]
     Active Substance: CARVEDILOL
  5. GLUCOSAMINE SULFATE [Concomitant]
     Active Substance: GLUCOSAMINE SULFATE
  6. NORVASC [Concomitant]
     Active Substance: AMLODIPINE BESYLATE
  7. ATROVASTATIN CALCIUM [Concomitant]
     Active Substance: ATORVASTATIN CALCIUM
  8. TERAZOSIN HCL [Concomitant]
     Active Substance: TERAZOSIN HYDROCHLORIDE
  9. LISINOPRIL. [Concomitant]
     Active Substance: LISINOPRIL

REACTIONS (8)
  - Back pain [Unknown]
  - Neck pain [Not Recovered/Not Resolved]
  - Blood pressure increased [Unknown]
  - Musculoskeletal pain [Unknown]
  - Swelling [Not Recovered/Not Resolved]
  - Pain in extremity [Not Recovered/Not Resolved]
  - Cerebrovascular accident [Unknown]
  - Chest pain [Unknown]
